FAERS Safety Report 8950131 (Version 1)
Quarter: 2012Q4

REPORT INFORMATION
  Report Type: 
  Country: US (occurrence: US)
  Receive Date: 20121205
  Receipt Date: 20121205
  Transmission Date: 20130627
  Serious: Yes (Other)
  Sender: FDA-Public Use
  Company Number: US-ASTELLAS-2012US003458

PATIENT
  Age: 64 Year
  Sex: Male

DRUGS (4)
  1. TARCEVA [Suspect]
     Indication: LUNG NEOPLASM MALIGNANT
     Dosage: 150 mg, UID/QD
     Route: 048
     Dates: start: 201112, end: 20120323
  2. TARCEVA [Suspect]
     Indication: METASTASES TO LYMPH NODES
     Dosage: 150 mg, UID/QD
     Route: 048
  3. TARCEVA [Suspect]
     Dosage: 150 mg, UID/QD
     Route: 048
  4. TARCEVA [Suspect]
     Dosage: 150 mg, UID/QD
     Route: 048

REACTIONS (8)
  - Incorrect product storage [Unknown]
  - Malignant neoplasm progression [Unknown]
  - Abdominal discomfort [Recovering/Resolving]
  - Drug ineffective [Unknown]
  - Acne [Recovering/Resolving]
  - Alopecia [Recovering/Resolving]
  - Decreased appetite [Recovering/Resolving]
  - Fatigue [Recovering/Resolving]
